FAERS Safety Report 8456123-3 (Version None)
Quarter: 2012Q2

REPORT INFORMATION
  Report Type: 
  Country: None (occurrence: None)
  Receive Date: 20120621
  Receipt Date: 20120614
  Transmission Date: 20120825
  Serious: Yes (Hospitalization)
  Sender: FDA-Public Use
  Company Number: AT-ROCHE-1068025

PATIENT
  Age: 69 Year
  Sex: Female
  Weight: 67.8 kg

DRUGS (8)
  1. ASPIRIN [Concomitant]
  2. XELODA [Suspect]
     Route: 048
     Dates: start: 20120424, end: 20120504
  3. BISOPROLOL FUMARATE [Concomitant]
     Indication: HYPERTONIA
  4. AVASTIN [Suspect]
     Indication: COLORECTAL CANCER METASTATIC
     Dates: start: 20120424
  5. OXALIPLATIN [Suspect]
     Indication: COLORECTAL CANCER METASTATIC
     Dates: start: 20120424
  6. XELODA [Suspect]
     Indication: COLORECTAL CANCER METASTATIC
     Route: 048
     Dates: start: 20120403
  7. RAMIPRIL [Concomitant]
     Indication: HYPERTONIA
  8. SIMVASTATIN [Concomitant]

REACTIONS (8)
  - HYPERTENSION [None]
  - HAEMOGLOBIN DECREASED [None]
  - NAUSEA [None]
  - HYPERTONIA [None]
  - ILEITIS [None]
  - VOMITING [None]
  - DIARRHOEA [None]
  - ABDOMINAL PAIN [None]
